FAERS Safety Report 10590944 (Version 2)
Quarter: 2015Q1

REPORT INFORMATION
  Report Type: Spontaneous
  Country: CA (occurrence: CA)
  Receive Date: 20141118
  Receipt Date: 20150115
  Transmission Date: 20150720
  Serious: Yes (Other)
  Sender: FDA-Public Use
  Company Number: CA-ASTELLAS-2014US017603

PATIENT
  Age: 64 Year
  Sex: Male

DRUGS (2)
  1. TOVIAZ [Concomitant]
     Active Substance: FESOTERODINE FUMARATE
     Indication: HYPERTONIC BLADDER
     Dosage: UNK UNK, UNKNOWN FREQ.
     Route: 065
  2. MYRBETRIQ [Suspect]
     Active Substance: MIRABEGRON
     Indication: HYPERTONIC BLADDER
     Route: 048
     Dates: start: 201409

REACTIONS (2)
  - Intentional product use issue [Unknown]
  - Hypotension [Recovered/Resolved]

NARRATIVE: CASE EVENT DATE: 201409
